FAERS Safety Report 4989174-1 (Version None)
Quarter: 2006Q2

REPORT INFORMATION
  Report Type: 
  Country: None (occurrence: None)
  Receive Date: 20060425
  Receipt Date: 20060411
  Transmission Date: 20061013
  Serious: Yes (Other)
  Sender: FDA-Public Use
  Company Number: 2006050353

PATIENT
  Sex: Female

DRUGS (2)
  1. NEURONTIN [Suspect]
     Indication: ARTHRITIS
  2. LEXAPRO [Concomitant]

REACTIONS (1)
  - SPINAL OPERATION [None]
